FAERS Safety Report 14557661 (Version 2)
Quarter: 2018Q1

REPORT INFORMATION
  Report Type: Spontaneous
  Country: JP (occurrence: JP)
  Receive Date: 20180221
  Receipt Date: 20180227
  Transmission Date: 20180509
  Serious: Yes (Other)
  Sender: FDA-Public Use
  Company Number: JP-JNJFOC-20180223421

PATIENT
  Age: 92 Year
  Sex: Male

DRUGS (7)
  1. MUCODYNE [Concomitant]
     Active Substance: CARBOCYSTEINE
     Route: 048
     Dates: start: 20171116
  2. SPIRIVA [Concomitant]
     Active Substance: TIOTROPIUM BROMIDE MONOHYDRATE
     Route: 055
     Dates: start: 20171116
  3. NERISONA [Concomitant]
     Active Substance: DIFLUCORTOLONE VALERATE
     Route: 061
     Dates: start: 20171116
  4. REMINYL [Suspect]
     Active Substance: GALANTAMINE
     Indication: DEMENTIA ALZHEIMER^S TYPE
     Route: 048
     Dates: start: 20170914
  5. REMINYL [Suspect]
     Active Substance: GALANTAMINE
     Indication: DEMENTIA ALZHEIMER^S TYPE
     Route: 048
     Dates: start: 20180204, end: 20180208
  6. URIEF [Concomitant]
     Active Substance: SILODOSIN
     Route: 048
     Dates: start: 20171116
  7. REMINYL [Suspect]
     Active Substance: GALANTAMINE
     Indication: DEMENTIA ALZHEIMER^S TYPE
     Route: 048
     Dates: start: 20170719, end: 20170913

REACTIONS (7)
  - Treatment noncompliance [Unknown]
  - Cardiac failure [Unknown]
  - Spinal osteoarthritis [Unknown]
  - Cerebrovascular stenosis [Unknown]
  - Altered state of consciousness [Unknown]
  - Chronic obstructive pulmonary disease [Unknown]
  - Spinal osteoarthritis [Unknown]

NARRATIVE: CASE EVENT DATE: 20170724
